FAERS Safety Report 16794068 (Version 1)
Quarter: 2020Q3

REPORT INFORMATION
  Report Type: Spontaneous
  Country: US (occurrence: US)
  Receive Date: 20190911
  Receipt Date: 20190911
  Transmission Date: 20201105
  Serious: No
  Sender: FDA-Public Use
  Company Number: US-ROCHE-2308503

PATIENT
  Age: 27 Year
  Sex: Male

DRUGS (3)
  1. METHOTREXATE. [Concomitant]
     Active Substance: METHOTREXATE
  2. ALECTINIB. [Suspect]
     Active Substance: ALECTINIB
     Indication: ANAPLASTIC LARGE-CELL LYMPHOMA
     Route: 065
  3. BRENTUXIMAB [Concomitant]
     Active Substance: BRENTUXIMAB VEDOTIN

REACTIONS (1)
  - Rash papular [Recovered/Resolved]
